FAERS Safety Report 9041085 (Version 1)
Quarter: 2013Q1

REPORT INFORMATION
  Report Type: Spontaneous
  Country: US (occurrence: None)
  Receive Date: 20130124
  Receipt Date: 20130124
  Transmission Date: 20140127
  Serious: Yes (Disabling)
  Sender: FDA-Public Use
  Company Number: None

PATIENT
  Age: 72 Year
  Sex: Female
  Weight: 74.39 kg

DRUGS (2)
  1. CIPROFLOXACIN HCL [Suspect]
     Indication: INFECTION
     Dosage: 500 MG 2X DAILY
     Dates: start: 201207
  2. CIPROFLOXACIN HCL [Suspect]
     Indication: JAW DISORDER
     Dosage: 500 MG 2X DAILY
     Dates: start: 201207

REACTIONS (2)
  - Pain in extremity [None]
  - Tendon rupture [None]
